FAERS Safety Report 5047383-X (Version None)
Quarter: 2006Q3

REPORT INFORMATION
  Report Type: 
  Country: None (occurrence: None)
  Receive Date: 20060703
  Receipt Date: 20060619
  Transmission Date: 20061208
  Serious: Yes (Hospitalization)
  Sender: FDA-Public Use
  Company Number: 2006075455

PATIENT
  Sex: Female

DRUGS (3)
  1. ZELDOX (CAPSULES)  (ZIPRASIDONE) [Suspect]
     Indication: AFFECT LABILITY
     Dosage: 120 MG (60 MG, 2 IN 1 D), ORAL
     Route: 048
  2. CLORAZEPATE DIPOTASSIUM [Concomitant]
  3. DEPAKENE [Concomitant]

REACTIONS (1)
  - INCORRECT DOSE ADMINISTERED [None]
